FAERS Safety Report 7033682-9 (Version None)
Quarter: 2010Q4

REPORT INFORMATION
  Report Type: 
  Country: None (occurrence: None)
  Receive Date: 20101007
  Receipt Date: 20100927
  Transmission Date: 20110411
  Serious: No
  Sender: FDA-Public Use
  Company Number: US-CELGENEUS-163-21880-09041820

PATIENT
  Sex: Male

DRUGS (4)
  1. REVLIMID [Suspect]
     Indication: MULTIPLE MYELOMA
     Route: 048
     Dates: start: 20090130, end: 20090716
  2. REVLIMID [Suspect]
     Route: 048
     Dates: start: 20100401
  3. REVLIMID [Suspect]
     Route: 048
     Dates: start: 20100701
  4. ASPIRIN [Concomitant]
     Indication: PRODUCT USED FOR UNKNOWN INDICATION
     Route: 065

REACTIONS (3)
  - ASTHENIA [None]
  - HEARING IMPAIRED [None]
  - TINNITUS [None]
